FAERS Safety Report 5546739-6 (Version None)
Quarter: 2007Q4

REPORT INFORMATION
  Report Type: 
  Country: None (occurrence: None)
  Receive Date: 20071123
  Receipt Date: 20061219
  Transmission Date: 20080405
  Serious: Yes (Other)
  Sender: FDA-Public Use
  Company Number: US-JNJFOC-20061205610

PATIENT
  Age: 56 Year
  Sex: Male
  Weight: 99.7913 kg

DRUGS (5)
  1. LEVAQUIN [Suspect]
     Indication: SINUSITIS
     Dosage: 750 MG, 1 IN 1 DAY, ORAL
     Route: 048
     Dates: start: 20061215
  2. METFORMIN (METFORMIN) TABLET [Concomitant]
  3. ACTOSE (PIOGLITAZONE) TABLET [Concomitant]
  4. VITORAN (SIMVASTATIN) [Concomitant]
  5. TESTOSTERONE (TESTOSTERONE) GEL [Concomitant]

REACTIONS (3)
  - BLOOD GLUCOSE INCREASED [None]
  - FLATULENCE [None]
  - NIGHTMARE [None]
